FAERS Safety Report 4303481-7 (Version None)
Quarter: 2004Q1

REPORT INFORMATION
  Report Type: 
  Country: None (occurrence: None)
  Receive Date: 20040220
  Receipt Date: 20040210
  Transmission Date: 20041129
  Serious: Yes (Other)
  Sender: FDA-Public Use
  Company Number: HQWYE908711FEB04

PATIENT
  Age: 67 Year
  Sex: Female
  Weight: 63.11 kg

DRUGS (2)
  1. PREMARIN [Suspect]
     Indication: MENOPAUSE
     Dosage: 0.625MG DAILY, ORAL
     Route: 048
     Dates: start: 19970101, end: 20040201
  2. LIBRIUM (CHLORIDIAZEPOXIDE HYDROCHLORIDE) [Concomitant]

REACTIONS (1)
  - COLON CANCER [None]
